FAERS Safety Report 12855487 (Version 4)
Quarter: 2017Q1

REPORT INFORMATION
  Report Type: Spontaneous
  Country: PT (occurrence: PT)
  Receive Date: 20161017
  Receipt Date: 20170328
  Transmission Date: 20170428
  Serious: Yes (Death, Hospitalization, Other)
  Sender: FDA-Public Use
  Company Number: PT-GILEAD-2016-0237845

PATIENT
  Age: 71 Year
  Sex: Female

DRUGS (1)
  1. ZYDELIG [Suspect]
     Active Substance: IDELALISIB
     Indication: B-CELL LYMPHOMA
     Dosage: UNK
     Route: 065
     Dates: start: 201603, end: 20161102

REACTIONS (10)
  - Disease progression [Fatal]
  - Neck mass [Unknown]
  - Myalgia [Unknown]
  - Anaemia [Unknown]
  - Blood creatinine increased [Unknown]
  - Fatigue [Unknown]
  - Pyelonephritis [Recovered/Resolved]
  - Anuria [Unknown]
  - Hydronephrosis [Unknown]
  - Abdominal mass [Unknown]

NARRATIVE: CASE EVENT DATE: 20160925
